FAERS Safety Report 13406523 (Version 2)
Quarter: 2017Q2

REPORT INFORMATION
  Report Type: Spontaneous
  Country: IN (occurrence: IN)
  Receive Date: 20170405
  Receipt Date: 20170413
  Transmission Date: 20170830
  Serious: Yes (Other)
  Sender: FDA-Public Use
  Company Number: IN-MYLANLABS-2017M1020801

PATIENT

DRUGS (1)
  1. TRIAMCINOLONE [Suspect]
     Active Substance: TRIAMCINOLONE
     Indication: JOINT ANKYLOSIS
     Route: 014

REACTIONS (3)
  - Retinal artery occlusion [Recovering/Resolving]
  - Retinal ischaemia [Recovering/Resolving]
  - Retinal artery embolism [Not Recovered/Not Resolved]
